FAERS Safety Report 6230703-8 (Version None)
Quarter: 2009Q2

REPORT INFORMATION
  Report Type: 
  Country: None (occurrence: None)
  Receive Date: 20090616
  Receipt Date: 20090609
  Transmission Date: 20091009
  Serious: Yes (Life-Threatening, Hospitalization, Other)
  Sender: FDA-Public Use
  Company Number: JP-BRISTOL-MYERS SQUIBB COMPANY-14590103

PATIENT
  Age: 57 Year
  Sex: Male
  Weight: 66 kg

DRUGS (18)
  1. SPRYCEL [Suspect]
     Indication: CHRONIC MYELOID LEUKAEMIA
     Dosage: 13APR09-16APR09:140/DAY(4DAYS);17APR09-22APR09(6 DAYS):100 MG,OD
     Route: 048
     Dates: start: 20090413, end: 20090422
  2. MAXIPIME [Suspect]
     Route: 042
     Dates: start: 20090415, end: 20090427
  3. AMIKACIN SULFATE [Suspect]
     Route: 042
     Dates: start: 20090331, end: 20090418
  4. FIRSTCIN [Suspect]
     Route: 042
     Dates: start: 20090328, end: 20090410
  5. GASTER [Suspect]
     Route: 048
     Dates: start: 20090318, end: 20090421
  6. IMATINIB MESILATE [Concomitant]
     Dates: start: 20011201, end: 20090412
  7. INTERFERON ALFA [Concomitant]
     Dates: start: 19980101
  8. HYDROXYUREA [Concomitant]
     Dates: start: 19980101
  9. SULFAMETHOXAZOLE AND TRIMETHOPRIM [Concomitant]
     Dates: start: 20090318, end: 20090427
  10. ALLOPURINOL [Concomitant]
     Dates: start: 20090318, end: 20090421
  11. FLUCONAZOLE [Concomitant]
     Dates: start: 20090325
  12. ZOPICLONE [Concomitant]
  13. TORSEMIDE [Concomitant]
  14. ETHYL LOFLAZEPATE [Concomitant]
  15. MOSAPRIDE CITRATE [Concomitant]
  16. PROCHLORPERAZINE MESYLATE [Concomitant]
  17. SULPIRIDE [Concomitant]
  18. DEFEROXAMINE MESYLATE [Concomitant]
     Dates: start: 20090319, end: 20090512

REACTIONS (3)
  - GASTROINTESTINAL HAEMORRHAGE [None]
  - RENAL FAILURE ACUTE [None]
  - VOMITING [None]
